FAERS Safety Report 16657872 (Version 1)
Quarter: 2019Q3

REPORT INFORMATION
  Report Type: Spontaneous
  Country: US (occurrence: US)
  Receive Date: 20190801
  Receipt Date: 20190801
  Transmission Date: 20191004
  Serious: No
  Sender: FDA-Public Use
  Company Number: US-GLAXOSMITHKLINE-US2019136066

PATIENT
  Age: 66 Year
  Sex: Female

DRUGS (2)
  1. FLONASE [Suspect]
     Active Substance: FLUTICASONE PROPIONATE
     Dosage: QD(FLONASE A YEAR AND A HALF ONE SPRAY IN EACH NOSTRIL ONCE A DAY)
  2. FLONASE [Suspect]
     Active Substance: FLUTICASONE PROPIONATE
     Indication: HYPERSENSITIVITY
     Dosage: QD( FLONASE A YEAR AND A HALF ONE SPRAY IN EACH NOSTRIL ONCE A DAY)
     Route: 045

REACTIONS (1)
  - Incorrect product administration duration [Unknown]
